FAERS Safety Report 6843226-X (Version None)
Quarter: 2010Q3

REPORT INFORMATION
  Report Type: 
  Country: None (occurrence: None)
  Receive Date: 20100715
  Receipt Date: 20100706
  Transmission Date: 20110219
  Serious: No
  Sender: FDA-Public Use
  Company Number: US-BIOGENIDEC-2010BI023251

PATIENT
  Age: 50 Year
  Sex: Male

DRUGS (4)
  1. TYSABRI [Suspect]
     Indication: MULTIPLE SCLEROSIS
     Route: 042
     Dates: start: 20090309
  2. AVONEX [Concomitant]
     Indication: MULTIPLE SCLEROSIS
     Route: 030
     Dates: start: 20060423
  3. AVONEX [Concomitant]
     Route: 030
     Dates: start: 20080201
  4. AVONEX [Concomitant]
     Route: 030
     Dates: start: 20090201

REACTIONS (1)
  - MULTIPLE SCLEROSIS RELAPSE [None]
